FAERS Safety Report 18753836 (Version 1)
Quarter: 2021Q1

REPORT INFORMATION
  Report Type: Report from Study
  Country: None (occurrence: US)
  Receive Date: 20210119
  Receipt Date: 20210119
  Transmission Date: 20210419
  Serious: Yes (Other)
  Sender: FDA-Public Use
  Company Number: US-ABBVIE-21K-163-3727142-00

PATIENT
  Age: 61 Year
  Sex: Male

DRUGS (1)
  1. HUMIRA [Suspect]
     Active Substance: ADALIMUMAB
     Indication: ANKYLOSING SPONDYLITIS
     Route: 058
     Dates: start: 20201016

REACTIONS (16)
  - Fatigue [Unknown]
  - Abdominal discomfort [Unknown]
  - Embolism [Unknown]
  - General physical condition abnormal [Unknown]
  - Tenderness [Unknown]
  - Neck pain [Unknown]
  - Joint range of motion decreased [Unknown]
  - Arthralgia [Unknown]
  - Back pain [Unknown]
  - Dysstasia [Unknown]
  - Pain in extremity [Unknown]
  - Osteoarthritis [Unknown]
  - Loss of personal independence in daily activities [Unknown]
  - Mobility decreased [Unknown]
  - Musculoskeletal stiffness [Recovering/Resolving]
  - Therapeutic product effect incomplete [Not Recovered/Not Resolved]

NARRATIVE: CASE EVENT DATE: 202101
